FAERS Safety Report 4289393-6 (Version None)
Quarter: 2004Q1

REPORT INFORMATION
  Report Type: 
  Country: None (occurrence: None)
  Receive Date: 20040206
  Receipt Date: 20040127
  Transmission Date: 20041129
  Serious: Yes (Life-Threatening, Hospitalization, Other)
  Sender: FDA-Public Use
  Company Number: HQ9960220APR2001

PATIENT
  Age: 13 Year
  Sex: Female

DRUGS (3)
  1. EFFEXOR XR [Suspect]
     Indication: DEPRESSION
     Dosage: 7200 MG OVERDOSE AMOUNT (FORTY-EIGHT 150 MG CAPSULES), ORAL
     Route: 048
  2. BENZAMYCIN (BENZOYL PEROXIDE/ERYTHROMYCIN) [Concomitant]
  3. PYRIDOXINE HCL TAB [Concomitant]

REACTIONS (8)
  - APNOEA [None]
  - CONFUSIONAL STATE [None]
  - FALSE POSITIVE LABORATORY RESULT [None]
  - GRAND MAL CONVULSION [None]
  - INTENTIONAL OVERDOSE [None]
  - MYDRIASIS [None]
  - SINUS TACHYCARDIA [None]
  - SUICIDE ATTEMPT [None]
